FAERS Safety Report 5532133-0 (Version None)
Quarter: 2007Q4

REPORT INFORMATION
  Report Type: 
  Country: None (occurrence: None)
  Receive Date: 20071129
  Receipt Date: 20071129
  Transmission Date: 20080405
  Serious: No
  Sender: FDA-Public Use
  Company Number: None

PATIENT
  Age: 61 Year
  Sex: Male

DRUGS (2)
  1. VARENICLINE [Suspect]
     Indication: SINUSITIS
     Dosage: 1MG BID PO
     Route: 048
     Dates: start: 20071015, end: 20071026
  2. VARENICLINE [Suspect]
     Indication: SMOKING CESSATION THERAPY
     Dosage: 1MG BID PO
     Route: 048
     Dates: start: 20071015, end: 20071026

REACTIONS (2)
  - MOOD SWINGS [None]
  - NAUSEA [None]
